FAERS Safety Report 4607210-9 (Version None)
Quarter: 2005Q1

REPORT INFORMATION
  Report Type: 
  Country: None (occurrence: None)
  Receive Date: 20050314
  Receipt Date: 20031021
  Transmission Date: 20050727
  Serious: Yes (Hospitalization)
  Sender: FDA-Public Use
  Company Number: ZA-SANOFI-SYNTHELABO-D01200301472

PATIENT
  Sex: Female
  Weight: 88 kg

DRUGS (13)
  1. SR57746 OR PLACEBO [Suspect]
     Route: 048
     Dates: start: 20030730
  2. OXALIPLATIN [Suspect]
     Route: 042
     Dates: start: 20031006, end: 20031006
  3. FLUOROURACIL [Suspect]
     Dosage: 770 MG (400 MG/M2 AS IV BOLUS) THEN 1160 MG (600 MG/M2 AS 22 HOURS CONTINUOUS INFUSION) D1-D2 Q2W
     Route: 042
     Dates: start: 20031006, end: 20031007
  4. LEUCOVORIN [Suspect]
     Dosage: 386 MG AS 2 HOURS INFUSION ON D1-D2 Q2W
     Route: 042
     Dates: start: 20031006, end: 20031007
  5. NAVOBAN [Concomitant]
     Dosage: UNK
     Route: 065
     Dates: start: 20030730
  6. DECADRON [Concomitant]
     Dosage: UNK
     Route: 065
     Dates: start: 20030730
  7. MAXOLON [Concomitant]
     Dosage: UNK
     Route: 065
     Dates: start: 20030730
  8. AGAROL [Concomitant]
     Dosage: UNK
     Route: 065
     Dates: start: 20030828
  9. ACETAMINOPHEN W/ CODEINE [Concomitant]
     Dosage: UNK
     Route: 065
     Dates: start: 20030828
  10. MUCAINE [Concomitant]
     Dosage: UNK
     Route: 065
     Dates: start: 20030828
  11. VITAMIN B COMPLEX CAP [Concomitant]
     Dosage: UNK
     Route: 065
     Dates: start: 20030828
  12. FESO4 [Concomitant]
     Dosage: UNK
     Route: 065
     Dates: start: 20030922
  13. RESERPINE [Concomitant]
     Dosage: UNK
     Route: 065
     Dates: start: 19990101

REACTIONS (2)
  - DIABETES MELLITUS NON-INSULIN-DEPENDENT [None]
  - HYPERGLYCAEMIA [None]
